FAERS Safety Report 11590265 (Version 1)
Quarter: 2015Q4

REPORT INFORMATION
  Report Type: Spontaneous
  Country: DK (occurrence: DK)
  Receive Date: 20151002
  Receipt Date: 20151002
  Transmission Date: 20160304
  Serious: Yes (Life-Threatening)
  Sender: FDA-Public Use
  Company Number: DK-MYLANLABS-2015M1032976

PATIENT

DRUGS (7)
  1. BRICANYL [Concomitant]
     Active Substance: TERBUTALINE SULFATE
     Indication: ANAPHYLACTIC REACTION
     Dates: start: 20150908, end: 20150908
  2. PREDNISOLON [Concomitant]
     Active Substance: PREDNISOLONE
     Indication: ANAPHYLACTIC REACTION
     Dates: start: 20150908, end: 20150908
  3. AERIUS [Concomitant]
     Active Substance: DESLORATADINE
     Indication: ANAPHYLACTIC REACTION
     Dates: start: 20150908, end: 20150908
  4. SOLU-MEDROL [Concomitant]
     Active Substance: METHYLPREDNISOLONE SODIUM SUCCINATE
     Indication: ANAPHYLACTIC REACTION
     Dates: start: 20150908, end: 20150908
  5. ALK ENGROTTEHALE 225 [Concomitant]
     Indication: HYPERSENSITIVITY
     Dates: start: 20150908, end: 20150908
  6. TAVEGYL [Concomitant]
     Active Substance: CLEMASTINE FUMARATE
     Indication: ANAPHYLACTIC REACTION
     Dates: start: 20150908, end: 20150908
  7. EPIPEN [Suspect]
     Active Substance: EPINEPHRINE
     Indication: ANAPHYLACTIC REACTION
     Route: 030
     Dates: start: 20150908, end: 20150908

REACTIONS (1)
  - Device failure [Unknown]

NARRATIVE: CASE EVENT DATE: 20150908
